FAERS Safety Report 7580633-4 (Version None)
Quarter: 2011Q2

REPORT INFORMATION
  Report Type: 
  Country: None (occurrence: None)
  Receive Date: 20110629
  Receipt Date: 20110620
  Transmission Date: 20111010
  Serious: Yes (Hospitalization, Other)
  Sender: FDA-Public Use
  Company Number: US-ASTRAZENECA-2011SE28104

PATIENT
  Age: 44 Year
  Sex: Female
  Weight: 70.3 kg

DRUGS (5)
  1. LAMICTAL [Concomitant]
  2. TRAZODONE HCL [Concomitant]
  3. WELLBUTRIN [Concomitant]
  4. SEROQUEL XR [Suspect]
     Indication: BIPOLAR DISORDER
     Route: 048
  5. CLONAPINE [Concomitant]

REACTIONS (9)
  - SINUSITIS [None]
  - FEMALE STERILISATION [None]
  - BREAST CANCER [None]
  - ARRHYTHMIA [None]
  - NAUSEA [None]
  - CHEMOTHERAPY [None]
  - TONSILLECTOMY [None]
  - HEADACHE [None]
  - HYPERCHOLESTEROLAEMIA [None]
